FAERS Safety Report 6679409-1 (Version None)
Quarter: 2010Q2

REPORT INFORMATION
  Report Type: 
  Country: None (occurrence: None)
  Receive Date: 20100413
  Receipt Date: 20100406
  Transmission Date: 20101027
  Serious: Yes (Death, Other)
  Sender: FDA-Public Use
  Company Number: CN-ROCHE-695729

PATIENT
  Age: 36 Year
  Sex: Male

DRUGS (4)
  1. MYCOPHENOLATE MOFETIL [Suspect]
     Indication: RENAL AND LIVER TRANSPLANT
     Route: 048
  2. MYCOPHENOLATE MOFETIL [Suspect]
     Route: 048
  3. PREDNISONE [Suspect]
     Indication: RENAL AND LIVER TRANSPLANT
     Dosage: DOSAGE STARTED AT 20 MG DAILY AND REDUCED BY 2.5 MG DAILY PER MONTH.
     Route: 048
  4. TACROLIMUS [Concomitant]
     Indication: RENAL AND LIVER TRANSPLANT
     Dosage: CONCENTRATION WAS MONITORING AND DOSE WAS MODIFIED BASED ON CONCENTRATION.
     Route: 048

REACTIONS (2)
  - LUNG INFECTION [None]
  - RECURRENT CANCER [None]
